FAERS Safety Report 24964701 (Version 2)
Quarter: 2025Q1

REPORT INFORMATION
  Report Type: Spontaneous
  Country: RU (occurrence: RU)
  Receive Date: 20250213
  Receipt Date: 20250220
  Transmission Date: 20250409
  Serious: No
  Sender: ALEXION PHARMACEUTICALS
  Company Number: RU-ASTRAZENECA-202502RUS008162RU

PATIENT
  Age: 57 Year
  Weight: 67 kg

DRUGS (5)
  1. OLAPARIB [Suspect]
     Active Substance: OLAPARIB
     Indication: Ovarian cancer stage III
     Dosage: 600 MILLIGRAM, QD
  2. CISPLATIN [Concomitant]
     Active Substance: CISPLATIN
     Route: 065
  3. PACLITAXEL [Concomitant]
     Active Substance: PACLITAXEL
     Route: 065
  4. CARBOPLATIN [Concomitant]
     Active Substance: CARBOPLATIN
  5. DOXORUBICIN [Concomitant]
     Active Substance: DOXORUBICIN
     Route: 065

REACTIONS (1)
  - Anaemia [Recovering/Resolving]
